FAERS Safety Report 4413850-2 (Version None)
Quarter: 2004Q3

REPORT INFORMATION
  Report Type: 
  Country: None (occurrence: None)
  Receive Date: 20040802
  Receipt Date: 20040802
  Transmission Date: 20050211
  Serious: Yes (Other)
  Sender: FDA-Public Use
  Company Number: None

PATIENT
  Age: 48 Year
  Sex: Male
  Weight: 136.0791 kg

DRUGS (14)
  1. TRAMADOL HCL [Suspect]
     Indication: NEUROPATHIC PAIN
     Dosage: 1 OR 2  3X PER DAY  ORAL
     Route: 048
     Dates: start: 20040630, end: 20040729
  2. TRAMADOL HCL [Suspect]
     Indication: NEUROPATHIC PAIN
     Dosage: 1 OR 2  2X PER DAY  ORAL
     Route: 048
     Dates: start: 20040729, end: 20040731
  3. CELEXA [Concomitant]
  4. CARTIA [Concomitant]
  5. LIPITOR [Concomitant]
  6. AVANDIA [Concomitant]
  7. ATENOLOL [Concomitant]
  8. METFORMIN HCL [Concomitant]
  9. PREVACID [Concomitant]
  10. GLIPIZIDE [Concomitant]
  11. HYDROCHLOROTHIAZIDE [Concomitant]
  12. TRICOR [Concomitant]
  13. DEPAKOTE [Concomitant]
  14. ALBUTEROL [Concomitant]

REACTIONS (3)
  - DRUG INEFFECTIVE [None]
  - EUPHORIC MOOD [None]
  - PHARMACEUTICAL PRODUCT COMPLAINT [None]
